FAERS Safety Report 9206368 (Version 1)
Quarter: 2013Q2

REPORT INFORMATION
  Report Type: Spontaneous
  Country: JP (occurrence: None)
  Receive Date: 20130401
  Receipt Date: 20130401
  Transmission Date: 20140414
  Serious: Yes (Life-Threatening, Hospitalization)
  Sender: FDA-Public Use
  Company Number: FK201300925

PATIENT
  Age: 67 Year
  Sex: Male

DRUGS (4)
  1. METHYLPREDNISOLONE [Suspect]
     Indication: GLOMERULONEPHRITIS RAPIDLY PROGRESSIVE
     Route: 042
     Dates: start: 200606
  2. PREDNISOLONE [Suspect]
     Indication: GLOMERULONEPHRITIS RAPIDLY PROGRESSIVE
     Dosage: 40 MG, WITH GRADUAL TAPER OF DOSE, ORAL
     Route: 048
     Dates: start: 200606
  3. TRIMETHOPRIM SULFAMETHOXAZOLE (BACTRIM/00086101) [Concomitant]
  4. AMPHOTERICIN (AMPHOTERICIN B) [Concomitant]

REACTIONS (7)
  - Nocardiosis [None]
  - Meningitis cryptococcal [None]
  - Productive cough [None]
  - Haemoglobin decreased [None]
  - Haematocrit decreased [None]
  - Brain abscess [None]
  - Pulmonary mass [None]
